FAERS Safety Report 5532254-2 (Version None)
Quarter: 2007Q4

REPORT INFORMATION
  Report Type: 
  Country: None (occurrence: None)
  Receive Date: 20071203
  Receipt Date: 20071126
  Transmission Date: 20080405
  Serious: Yes (Death, Hospitalization)
  Sender: FDA-Public Use
  Company Number: SE-SANOFI-SYNTHELABO-A01200713396

PATIENT
  Sex: Female

DRUGS (5)
  1. CALCIUM FOLINATE MAYNE [Concomitant]
  2. ERGENYL [Concomitant]
  3. NORMORIX MITE [Concomitant]
  4. ELOXATIN [Suspect]
     Indication: COLON CANCER
     Dosage: 150 MG
     Route: 041
     Dates: start: 20070730, end: 20070730
  5. FLUOROURACIL [Suspect]
     Indication: COLON CANCER
     Dosage: 875 MG
     Route: 041
     Dates: start: 20070730, end: 20070730

REACTIONS (1)
  - BONE MARROW FAILURE [None]
